FAERS Safety Report 7807468-9 (Version None)
Quarter: 2011Q4

REPORT INFORMATION
  Report Type: 
  Country: None (occurrence: None)
  Receive Date: 20111011
  Receipt Date: 20111003
  Transmission Date: 20120403
  Serious: Yes (Hospitalization)
  Sender: FDA-Public Use
  Company Number: PHHY2010US31410

PATIENT
  Sex: Female

DRUGS (1)
  1. RECLAST [Suspect]
     Dosage: 5 MG, UNK
     Route: 042

REACTIONS (12)
  - FEMUR FRACTURE [None]
  - PAIN IN EXTREMITY [None]
  - GLOSSODYNIA [None]
  - DRY SKIN [None]
  - TONGUE DISORDER [None]
  - PAIN IN JAW [None]
  - HYPOAESTHESIA ORAL [None]
  - BONE PAIN [None]
  - ARTHRALGIA [None]
  - CARDIAC DISORDER [None]
  - VOMITING [None]
  - HAIR TEXTURE ABNORMAL [None]
